FAERS Safety Report 5570161-X (Version None)
Quarter: 2007Q4

REPORT INFORMATION
  Report Type: 
  Country: None (occurrence: None)
  Receive Date: 20071217
  Receipt Date: 20071205
  Transmission Date: 20080405
  Serious: Yes (Hospitalization)
  Sender: FDA-Public Use
  Company Number: DE-JNJFOC-20070406012

PATIENT
  Age: 63 Year
  Sex: Male
  Weight: 97 kg

DRUGS (4)
  1. DECITABINE (DECITABINE) LYOPHILIZED POWDER [Suspect]
     Indication: MYELODYSPLASTIC SYNDROME
     Dosage: 15 MG/M2, 1 IN 8 HOUR, INTRAVENOUS
     Route: 042
     Dates: start: 20051005, end: 20051007
  2. CIPROBAY (CIPROFLOXACIN HYDROCHLORIDE) UNSPECIFIED [Concomitant]
  3. MERONEM (MEROPENEM) UNSPECIFIED [Concomitant]
  4. ITRACONAZOLE [Concomitant]

REACTIONS (2)
  - PLEURAL EFFUSION [None]
  - PNEUMONIA PRIMARY ATYPICAL [None]
